FAERS Safety Report 19166474 (Version 1)
Quarter: 2021Q2

REPORT INFORMATION
  Report Type: Spontaneous
  Country: US (occurrence: US)
  Receive Date: 20210421
  Receipt Date: 20210421
  Transmission Date: 20210717
  Serious: Yes (Hospitalization)
  Sender: FDA-Public Use
  Company Number: None

PATIENT
  Sex: Male

DRUGS (2)
  1. AUBAGIO [Suspect]
     Active Substance: TERIFLUNOMIDE
  2. LEMTRADA [Suspect]
     Active Substance: ALEMTUZUMAB

REACTIONS (7)
  - Pain [None]
  - Vomiting [None]
  - Asthenia [None]
  - Hypoaesthesia [None]
  - Headache [None]
  - Dizziness [None]
  - Condition aggravated [None]
